FAERS Safety Report 6443710-7 (Version None)
Quarter: 2009Q4

REPORT INFORMATION
  Report Type: 
  Country: None (occurrence: None)
  Receive Date: 20091117
  Receipt Date: 20091110
  Transmission Date: 20100525
  Serious: No
  Sender: FDA-Public Use
  Company Number: US-ROXANE LABORATORIES, INC.-2009-RO-01161RO

PATIENT
  Sex: Female

DRUGS (5)
  1. LITHIUM CARBONATE [Suspect]
     Indication: BIPOLAR DISORDER
     Dosage: 600 MG
     Route: 048
  2. CARBAMAZEPINE [Concomitant]
  3. PROPRANOLOL [Concomitant]
     Indication: ANXIETY
  4. CALTRATE [Concomitant]
  5. VITAMIN [Concomitant]

REACTIONS (1)
  - TREMOR [None]
